FAERS Safety Report 11485696 (Version 3)
Quarter: 2015Q3

REPORT INFORMATION
  Report Type: Report from Study
  Country: US (occurrence: US)
  Receive Date: 20150909
  Receipt Date: 20150928
  Transmission Date: 20151125
  Serious: No
  Sender: FDA-Public Use
  Company Number: US-AMGEN-USASL2015090512

PATIENT
  Age: 71 Year
  Sex: Female

DRUGS (1)
  1. ENBREL [Suspect]
     Active Substance: ETANERCEPT
     Indication: RHEUMATOID ARTHRITIS
     Dosage: 50 MG, QWK
     Route: 065
     Dates: start: 20150729

REACTIONS (6)
  - Pain in extremity [Unknown]
  - Injection site pain [Unknown]
  - Weight decreased [Unknown]
  - Decreased appetite [Unknown]
  - Musculoskeletal disorder [Unknown]
  - Device malfunction [Unknown]

NARRATIVE: CASE EVENT DATE: 2015
